FAERS Safety Report 9456077 (Version 3)
Quarter: 2013Q4

REPORT INFORMATION
  Report Type: Report from Study
  Country: US (occurrence: US)
  Receive Date: 20130813
  Receipt Date: 20131126
  Transmission Date: 20140711
  Serious: Yes (Death, Hospitalization)
  Sender: FDA-Public Use
  Company Number: US-ACTELION-A-US2013-86804

PATIENT
  Age: 38 Year
  Sex: Female

DRUGS (2)
  1. VELETRI [Suspect]
     Indication: PULMONARY ARTERIAL HYPERTENSION
     Dosage: 30 NG/KG, PER MIN
     Route: 042
     Dates: start: 201204, end: 20130904
  2. COUMADIN [Concomitant]

REACTIONS (8)
  - Pulmonary hypertension [Fatal]
  - Right ventricular failure [Fatal]
  - Cardio-respiratory arrest [Fatal]
  - Scleroderma [Fatal]
  - Disease progression [Fatal]
  - Disease complication [Fatal]
  - Blood potassium decreased [Unknown]
  - Fluid overload [Unknown]
